FAERS Safety Report 5883807-3 (Version None)
Quarter: 2008Q3

REPORT INFORMATION
  Report Type: 
  Country: None (occurrence: None)
  Receive Date: 20080915
  Receipt Date: 20080905
  Transmission Date: 20090109
  Serious: Yes (Other)
  Sender: FDA-Public Use
  Company Number: GB-ROCHE-584696

PATIENT
  Age: 60 Year
  Sex: Female

DRUGS (4)
  1. CELLCEPT [Suspect]
     Indication: SCLERODERMA
     Route: 048
     Dates: start: 20071001, end: 20080703
  2. CELLCEPT [Suspect]
     Route: 048
     Dates: start: 20080703, end: 20080701
  3. CITALOPRAM HYDROBROMIDE [Concomitant]
     Route: 048
  4. LEVOTHYROXINE SODIUM [Concomitant]
     Route: 048

REACTIONS (4)
  - ALOPECIA [None]
  - HAIR COLOUR CHANGES [None]
  - PERIPHERAL COLDNESS [None]
  - TEMPERATURE INTOLERANCE [None]
